FAERS Safety Report 10619810 (Version 1)
Quarter: 2014Q4

REPORT INFORMATION
  Report Type: Spontaneous
  Country: US (occurrence: None)
  Receive Date: 20141128
  Receipt Date: 20141128
  Transmission Date: 20150529
  Serious: Yes (Death)
  Sender: FDA-Public Use
  Company Number: 2014SA161008

PATIENT
  Age: 17 Year
  Sex: Female

DRUGS (4)
  1. CHLORPHENIRAMINE [Suspect]
     Active Substance: CHLORPHENIRAMINE
     Indication: COMPLETED SUICIDE
     Dosage: ;ONCE;UNKNOWN
  2. ACETAMINOPHEN. [Suspect]
     Active Substance: ACETAMINOPHEN
     Indication: COMPLETED SUICIDE
     Dosage: ;ONCE;UNKNOWN
  3. DIPHENHYDRAMINE [Suspect]
     Active Substance: DIPHENHYDRAMINE
     Indication: COMPLETED SUICIDE
     Dosage: ;ONCE;UNKNOWN
  4. DEXTROMETHORPHAN HYDROBROMIDE. [Suspect]
     Active Substance: DEXTROMETHORPHAN HYDROBROMIDE
     Indication: COMPLETED SUICIDE
     Dosage: ;ONCE;UNKNOWN

REACTIONS (1)
  - Intentional overdose [None]

NARRATIVE: CASE EVENT DATE: 1987
